FAERS Safety Report 9683061 (Version 1)
Quarter: 2013Q4

REPORT INFORMATION
  Report Type: Spontaneous
  Country: US (occurrence: None)
  Receive Date: 20131111
  Receipt Date: 20131111
  Transmission Date: 20140711
  Serious: Yes (Other)
  Sender: FDA-Public Use
  Company Number: None

PATIENT
  Age: 34 Year
  Sex: Male
  Weight: 83.92 kg

DRUGS (3)
  1. FLUOXETINE [Suspect]
     Indication: MAJOR DEPRESSION
     Dosage: 40
     Route: 048
  2. FLUOXETINE [Suspect]
     Indication: PANIC DISORDER WITH AGORAPHOBIA
     Dosage: 20
     Route: 048
  3. FLUOXETINE [Suspect]
     Dosage: 20
     Route: 048

REACTIONS (3)
  - Abdominal pain upper [None]
  - Abdominal discomfort [None]
  - Product substitution issue [None]
